FAERS Safety Report 21436132 (Version 1)
Quarter: 2022Q4

REPORT INFORMATION
  Report Type: Spontaneous
  Country: US (occurrence: US)
  Receive Date: 20221010
  Receipt Date: 20221010
  Transmission Date: 20230113
  Serious: No
  Sender: FDA-Public Use
  Company Number: US-ORGANON-O2209USA001472

PATIENT

DRUGS (1)
  1. DULERA [Suspect]
     Active Substance: FORMOTEROL FUMARATE DIHYDRATE\MOMETASONE FUROATE
     Dosage: 100 MCG/5 MCG
     Dates: start: 2022

REACTIONS (5)
  - Device malfunction [Unknown]
  - Poor quality device used [Unknown]
  - Intentional product misuse [Unknown]
  - Product dose omission issue [Unknown]
  - No adverse event [Unknown]

NARRATIVE: CASE EVENT DATE: 20220101
